FAERS Safety Report 18439663 (Version 2)
Quarter: 2020Q4

REPORT INFORMATION
  Report Type: Report from Study
  Country: BR (occurrence: BR)
  Receive Date: 20201029
  Receipt Date: 20201107
  Transmission Date: 20210114
  Serious: Yes (Other)
  Sender: FDA-Public Use
  Company Number: NVSC2020BR288100

PATIENT
  Sex: Female

DRUGS (4)
  1. TRAVATAN [Suspect]
     Active Substance: TRAVOPROST
     Indication: GLAUCOMA
     Dosage: UNK
     Route: 047
     Dates: end: 20201021
  2. TIMOLOL MALEATE. [Suspect]
     Active Substance: TIMOLOL MALEATE
     Indication: GLAUCOMA
     Dosage: 5 ML, BID (1 DROP N EACH EYE EVERY 12 HOURS) (AFTER USING TRAVATAN)
     Route: 047
  3. TRAVATAN [Suspect]
     Active Substance: TRAVOPROST
     Dosage: 1 DRP, QD (2.5) (1 DROP IN EACH EYE AT NIGHT)
     Route: 047
  4. TRAVAMED [Suspect]
     Active Substance: TRAVOPROST
     Indication: PRODUCT USED FOR UNKNOWN INDICATION
     Dosage: UNK
     Route: 065

REACTIONS (4)
  - Product substitution issue [Unknown]
  - Glaucoma [Unknown]
  - Eye irritation [Recovered/Resolved]
  - Drug ineffective [Unknown]
